FAERS Safety Report 7244337-X (Version None)
Quarter: 2011Q1

REPORT INFORMATION
  Report Type: 
  Country: None (occurrence: None)
  Receive Date: 20110119
  Receipt Date: 20110119
  Transmission Date: 20110831
  Serious: No
  Sender: FDA-Public Use
  Company Number: None

PATIENT
  Sex: Female
  Weight: 86.1834 kg

DRUGS (1)
  1. ZOCOR [Suspect]
     Indication: BLOOD CHOLESTEROL INCREASED
     Dates: start: 20100113, end: 20101215

REACTIONS (5)
  - URINARY INCONTINENCE [None]
  - FAECAL INCONTINENCE [None]
  - THROMBOSIS [None]
  - RHABDOMYOLYSIS [None]
  - STRESS FRACTURE [None]
